FAERS Safety Report 9298443 (Version 1)
Quarter: 2013Q2

REPORT INFORMATION
  Report Type: Report from Study
  Country: DE (occurrence: DE)
  Receive Date: 20130520
  Receipt Date: 20130520
  Transmission Date: 20140414
  Serious: Yes (Death, Hospitalization, Other)
  Sender: FDA-Public Use
  Company Number: DE-009507513-1305DEU010523

PATIENT
  Sex: Female
  Weight: 79 kg

DRUGS (3)
  1. VICTRELIS [Suspect]
     Indication: CHRONIC HEPATITIS C
     Dosage: UNK
     Dates: start: 201202
  2. REBETOL [Suspect]
     Indication: CHRONIC HEPATITIS C
     Dosage: UNK
     Dates: start: 201201
  3. PEGINTERFERON ALFA-2A [Suspect]
     Indication: CHRONIC HEPATITIS C
     Dosage: 180 MICROGRAM, QW
     Route: 058
     Dates: start: 20120113, end: 20120518

REACTIONS (7)
  - Endocarditis [Fatal]
  - Acute hepatic failure [Unknown]
  - Pneumonia [Unknown]
  - Urinary tract infection [Unknown]
  - Lactic acidosis [Unknown]
  - Respiratory failure [Unknown]
  - Cardiovascular insufficiency [Unknown]
